FAERS Safety Report 16181515 (Version 1)
Quarter: 2019Q2

REPORT INFORMATION
  Report Type: Spontaneous
  Country: CN (occurrence: CN)
  Receive Date: 20190410
  Receipt Date: 20190410
  Transmission Date: 20190711
  Serious: Yes (Other)
  Sender: FDA-Public Use
  Company Number: CN-BAXTER-2019BAX006926

PATIENT
  Age: 2 Year
  Sex: Male
  Weight: 12 kg

DRUGS (32)
  1. ENDOXAN [Suspect]
     Active Substance: CYCLOPHOSPHAMIDE
     Dosage: CYCLOPHOSPHAMIDE FOR INJECTION 0.52 G + 0.9% SODIUM CHLORIDE INJECTION 250 ML, CHEMOTHERAPY THIRD CY
     Route: 041
     Dates: start: 20181217, end: 20181217
  2. 0.9% SODIUM CHLORIDE INJECTION [Suspect]
     Active Substance: SODIUM CHLORIDE
     Indication: MEDICATION DILUTION
     Dosage: VINCRISTINE SULFATE FOR INJECTION 0.78 G + 0.9% SODIUM CHLORIDE INJECTION 20 ML
     Route: 042
     Dates: start: 20181210, end: 20181210
  3. CYTOSAR [Suspect]
     Active Substance: CYTARABINE
     Dosage: CYTARABINE FOR INJECTION (CYTOSAR) + 5% GLUCOSE INJECTION, DOSE REINTRODUCED
     Route: 041
  4. AIYANG (PEGASPARGASE) [Suspect]
     Active Substance: PEGASPARGASE
     Dosage: CHEMOTHERAPY THIRD CYCLE
     Route: 030
     Dates: start: 20181210, end: 20181210
  5. DEXAMETHASONE SODIUM PHOSPHATE. [Suspect]
     Active Substance: DEXAMETHASONE SODIUM PHOSPHATE
     Dosage: METHOTREXATE FOR INJECTION + DEXAMETHASONE SODIUM PHOSPHATE INJECTION + 0.9% SODIUM CHLORIDE INJECTI
     Route: 037
  6. ENDOXAN [Suspect]
     Active Substance: CYCLOPHOSPHAMIDE
     Indication: ACUTE LYMPHOCYTIC LEUKAEMIA
     Dosage: FIRST TWO CYCLES
     Route: 065
  7. CYTOSAR [Suspect]
     Active Substance: CYTARABINE
     Indication: ACUTE LYMPHOCYTIC LEUKAEMIA
     Dosage: FIRST TWO CYCLES
     Route: 065
  8. CYTOSAR [Suspect]
     Active Substance: CYTARABINE
     Dosage: CYTARABINE FOR INJECTION (CYTOSAR) 0.025 G + DEXAMETHASONE SODIUM PHOSPHATE INJECTION 2.5 MG + 0.9%
     Route: 037
     Dates: start: 20181217, end: 20181217
  9. METHOTREXATE. [Suspect]
     Active Substance: METHOTREXATE
     Dosage: METHOTREXATE FOR INJECTION + DEXAMETHASONE SODIUM PHOSPHATE INJECTION  + 0.9% SODIUM CHLORIDE INJECT
     Route: 037
  10. DEXAMETHASONE SODIUM PHOSPHATE. [Suspect]
     Active Substance: DEXAMETHASONE SODIUM PHOSPHATE
     Indication: ACUTE LYMPHOCYTIC LEUKAEMIA
     Dosage: FIRST TWO CYCLES
     Route: 065
  11. 0.9% SODIUM CHLORIDE INJECTION [Suspect]
     Active Substance: SODIUM CHLORIDE
     Dosage: METHOTREXATE FOR INJECTION 10 MG + DEXAMETHASONE SODIUM PHOSPHATE INJECTION 2.5 MG + 0.9% SODIUM CHL
     Route: 037
     Dates: start: 20181217, end: 20181217
  12. 0.9% SODIUM CHLORIDE INJECTION [Suspect]
     Active Substance: SODIUM CHLORIDE
     Dosage: VINCRISTINE SULFATE FOR INJECTION  + 0.9% SODIUM CHLORIDE INJECTION, DOSE REINTRODUCED
     Route: 042
  13. CYTOSAR [Suspect]
     Active Substance: CYTARABINE
     Dosage: CYTARABINE FOR INJECTION (CYTOSAR) 0.026 G + 5% GLUCOSE INJECTION 100 ML Q12H, CHEMOTHERAPY THIRD CY
     Route: 041
     Dates: start: 20181217, end: 20181224
  14. METHOTREXATE. [Suspect]
     Active Substance: METHOTREXATE
     Dosage: METHOTREXATE FOR INJECTION 10 MG + DEXAMETHASONE SODIUM PHOSPHATE INJECTION 2.5 MG + 0.9% SODIUM CHL
     Route: 037
     Dates: start: 20181217, end: 20181217
  15. DEXAMETHASONE SODIUM PHOSPHATE. [Suspect]
     Active Substance: DEXAMETHASONE SODIUM PHOSPHATE
     Dosage: METHOTREXATE FOR INJECTION 10 MG + DEXAMETHASONE SODIUM PHOSPHATE INJECTION 2.5 MG + 0.9% SODIUM CHL
     Route: 037
     Dates: start: 20181217, end: 20181217
  16. 0.9% SODIUM CHLORIDE INJECTION [Suspect]
     Active Substance: SODIUM CHLORIDE
     Dosage: METHOTREXATE FOR INJECTION + DEXAMETHASONE SODIUM PHOSPHATE INJECTION + 0.9% SODIUM CHLORIDE INJECTI
     Route: 037
  17. 5% GLUCOSE  INJECTION [Suspect]
     Active Substance: DEXTROSE
     Dosage: CYTARABINE FOR INJECTION (CYTOSAR)  + 5% GLUCOSE INJECTION, DOSE REINTRODUCED
     Route: 041
  18. VINCRISTINE SULFATE. [Suspect]
     Active Substance: VINCRISTINE SULFATE
     Dosage: VINCRISTINE SULFATE FOR INJECTION 0.78 G + 0.9% SODIUM CHLORIDE INJECTION 20 ML, CHEMOTHERAPY THIRD
     Route: 042
     Dates: start: 20181210, end: 20181210
  19. AIYANG (PEGASPARGASE) [Suspect]
     Active Substance: PEGASPARGASE
     Indication: ACUTE LYMPHOCYTIC LEUKAEMIA
     Dosage: FIRST TWO CYCLES
     Route: 065
  20. DEXAMETHASONE SODIUM PHOSPHATE. [Suspect]
     Active Substance: DEXAMETHASONE SODIUM PHOSPHATE
     Dosage: CYTARABINE FOR INJECTION (CYTOSAR) 0.025 G + DEXAMETHASONE SODIUM PHOSPHATE INJECTION 2.5 MG + 0.9%
     Route: 037
     Dates: start: 20181217, end: 20181217
  21. DEXAMETHASONE SODIUM PHOSPHATE. [Suspect]
     Active Substance: DEXAMETHASONE SODIUM PHOSPHATE
     Dosage: CYTARABINE FOR INJECTION (CYTOSAR)  + DEXAMETHASONE SODIUM PHOSPHATE INJECTION  + 0.9% SODIUM CHLORI
     Route: 037
  22. ENDOXAN [Suspect]
     Active Substance: CYCLOPHOSPHAMIDE
     Dosage: CYCLOPHOSPHAMIDE FOR INJECTION + 0.9% SODIUM CHLORIDE INJECTION, DOSE REINTRODUCED
     Route: 041
  23. 0.9% SODIUM CHLORIDE INJECTION [Suspect]
     Active Substance: SODIUM CHLORIDE
     Dosage: CYTARABINE FOR INJECTION (CYTOSAR) 0.025 G + DEXAMETHASONE SODIUM PHOSPHATE INJECTION 2.5 MG + 0.9%
     Route: 037
     Dates: start: 20181217, end: 20181217
  24. 0.9% SODIUM CHLORIDE INJECTION [Suspect]
     Active Substance: SODIUM CHLORIDE
     Dosage: CYCLOPHOSPHAMIDE FOR INJECTION 0.52 G + 0.9% SODIUM CHLORIDE INJECTION 250 ML
     Route: 041
     Dates: start: 20181217, end: 20181217
  25. 0.9% SODIUM CHLORIDE INJECTION [Suspect]
     Active Substance: SODIUM CHLORIDE
     Dosage: CYTARABINE FOR INJECTION (CYTOSAR)  + DEXAMETHASONE SODIUM PHOSPHATE INJECTION + 0.9% SODIUM CHLORID
     Route: 037
  26. VINCRISTINE SULFATE. [Suspect]
     Active Substance: VINCRISTINE SULFATE
     Dosage: VINCRISTINE SULFATE FOR INJECTION  + 0.9% SODIUM CHLORIDE INJECTION, DOSE REINTRODUCED
     Route: 042
  27. AIYANG (PEGASPARGASE) [Suspect]
     Active Substance: PEGASPARGASE
     Dosage: DOSE REINTRODUCED
     Route: 030
  28. 0.9% SODIUM CHLORIDE INJECTION [Suspect]
     Active Substance: SODIUM CHLORIDE
     Dosage: CYCLOPHOSPHAMIDE FOR INJECTION + 0.9% SODIUM CHLORIDE INJECTION, DOSE REINTRODUCED
     Route: 041
  29. 5% GLUCOSE  INJECTION [Suspect]
     Active Substance: DEXTROSE
     Indication: MEDICATION DILUTION
     Dosage: CYTARABINE FOR INJECTION (CYTOSAR) 0.026 G + 5% GLUCOSE INJECTION 100 ML Q12H
     Route: 041
     Dates: start: 20181217, end: 20181224
  30. VINCRISTINE SULFATE. [Suspect]
     Active Substance: VINCRISTINE SULFATE
     Indication: ACUTE LYMPHOCYTIC LEUKAEMIA
     Dosage: FIRST TWO CYCLES
     Route: 065
  31. CYTOSAR [Suspect]
     Active Substance: CYTARABINE
     Dosage: CYTARABINE FOR INJECTION (CYTOSAR) + DEXAMETHASONE SODIUM PHOSPHATE INJECTION  + 0.9% SODIUM CHLORID
     Route: 037
  32. METHOTREXATE. [Suspect]
     Active Substance: METHOTREXATE
     Indication: ACUTE LYMPHOCYTIC LEUKAEMIA
     Dosage: FIRST TWO CYCLES
     Route: 065

REACTIONS (7)
  - Dizziness [None]
  - Dyspnoea [None]
  - Bone marrow failure [Recovering/Resolving]
  - Depression [Unknown]
  - Pallor [None]
  - Palpitations [None]
  - Asthenia [None]

NARRATIVE: CASE EVENT DATE: 20181223
